FAERS Safety Report 4357743-8 (Version None)
Quarter: 2004Q2

REPORT INFORMATION
  Report Type: 
  Country: None (occurrence: None)
  Receive Date: 20040511
  Receipt Date: 20040430
  Transmission Date: 20050107
  Serious: Yes (Other)
  Sender: FDA-Public Use
  Company Number: SEWYE594720FEB04

PATIENT
  Age: 65 Year
  Sex: Female

DRUGS (4)
  1. RAPAMUNE [Suspect]
     Indication: IMMUNOSUPPRESSANT DRUG THERAPY
     Dosage: 3 MG 1X PER 1 DAY
     Route: 048
     Dates: start: 19990510
  2. PREDNISOLONE [Concomitant]
  3. LESCOL [Concomitant]
  4. LASIX RETARD (FUROSEMIDE) [Concomitant]

REACTIONS (2)
  - PHARYNGOLARYNGEAL PAIN [None]
  - TONGUE NEOPLASM MALIGNANT STAGE UNSPECIFIED [None]
